FAERS Safety Report 12990579 (Version 2)
Quarter: 2016Q4

REPORT INFORMATION
  Report Type: Spontaneous
  Country: BE (occurrence: BE)
  Receive Date: 20161201
  Receipt Date: 20161213
  Transmission Date: 20170207
  Serious: Yes (Other)
  Sender: FDA-Public Use
  Company Number: BE-TAKEDA-2016TUS021055

PATIENT
  Age: 36 Year
  Sex: Female
  Weight: 68 kg

DRUGS (2)
  1. ENTYVIO [Suspect]
     Active Substance: VEDOLIZUMAB
     Indication: CROHN^S DISEASE
     Dosage: 300 MG, UNK
     Route: 042
     Dates: start: 20160613
  2. METHOTREXATE (METHOTREXATE SODIUM) [Concomitant]
     Active Substance: METHOTREXATE SODIUM
     Dosage: 15 MG, 1/WEEK
     Route: 048
     Dates: start: 201402

REACTIONS (6)
  - Crohn^s disease [Recovered/Resolved]
  - Fatigue [Unknown]
  - Large intestinal ulcer [Unknown]
  - Drug ineffective [Unknown]
  - Anal fissure [Unknown]
  - Weight decreased [Unknown]
